FAERS Safety Report 7883008-3 (Version None)
Quarter: 2011Q4

REPORT INFORMATION
  Report Type: 
  Country: None (occurrence: None)
  Receive Date: 20111102
  Receipt Date: 20111020
  Transmission Date: 20120403
  Serious: Yes (Other)
  Sender: FDA-Public Use
  Company Number: GB-RANBAXY-2011R1-45670

PATIENT
  Age: 44 Year
  Sex: Male
  Weight: 74.4 kg

DRUGS (7)
  1. CLOZARIL [Suspect]
     Dosage: UNK
     Route: 048
     Dates: end: 20110520
  2. SERTRALINE HYDROCHLORIDE [Concomitant]
     Indication: PRODUCT USED FOR UNKNOWN INDICATION
     Dosage: 50 MG, UNK
     Route: 048
  3. SCOPOLAMINE [Suspect]
     Indication: IRRITABLE BOWEL SYNDROME
     Dosage: 10 MG, UNK
     Route: 048
     Dates: start: 20110520
  4. CLOZARIL [Suspect]
     Indication: SCHIZOPHRENIA, PARANOID TYPE
     Dosage: UNK MG, UNK
     Route: 048
     Dates: start: 20100809
  5. RISPERIDONE [Suspect]
     Indication: PRODUCT USED FOR UNKNOWN INDICATION
     Dosage: UNK
     Route: 065
  6. FERROUS SULFATE TAB [Concomitant]
     Indication: PRODUCT USED FOR UNKNOWN INDICATION
     Dosage: 200 MG, BID
     Route: 048
  7. HYOSCINE HYDROBROMIDE [Concomitant]
     Indication: PRODUCT USED FOR UNKNOWN INDICATION
     Dosage: 300 UG, UNK
     Route: 065
     Dates: start: 20110512

REACTIONS (14)
  - WHITE BLOOD CELL COUNT DECREASED [None]
  - DIZZINESS [None]
  - MICROCYTIC ANAEMIA [None]
  - NEUTROPENIA [None]
  - HALLUCINATION, AUDITORY [None]
  - PERSECUTORY DELUSION [None]
  - RED BLOOD CELL ELLIPTOCYTES PRESENT [None]
  - IDEAS OF REFERENCE [None]
  - MEAN CELL VOLUME DECREASED [None]
  - SALIVARY HYPERSECRETION [None]
  - SEASONAL ALLERGY [None]
  - WEIGHT DECREASED [None]
  - PLATELET COUNT DECREASED [None]
  - VOMITING [None]
